FAERS Safety Report 7811860-6 (Version None)
Quarter: 2011Q4

REPORT INFORMATION
  Report Type: 
  Country: None (occurrence: None)
  Receive Date: 20111013
  Receipt Date: 20110928
  Transmission Date: 20120403
  Serious: Yes (Other)
  Sender: FDA-Public Use
  Company Number: PHHY2011BR86828

PATIENT
  Age: 40 Year
  Sex: Male
  Weight: 81 kg

DRUGS (4)
  1. ATENOLOL [Suspect]
     Dosage: 100 MG, BID
  2. EXFORGE [Suspect]
     Indication: HYPERTENSION
  3. FUROSEMIDE [Suspect]
  4. ROSUVASTATIN [Suspect]

REACTIONS (7)
  - CREATININE RENAL CLEARANCE DECREASED [None]
  - BLOOD PRESSURE DECREASED [None]
  - DYSPNOEA [None]
  - BLOOD PRESSURE INCREASED [None]
  - DIASTOLIC DYSFUNCTION [None]
  - OEDEMA PERIPHERAL [None]
  - PROTEINURIA [None]
